FAERS Safety Report 18398703 (Version 2)
Quarter: 2020Q4

REPORT INFORMATION
  Report Type: Spontaneous
  Country: US (occurrence: US)
  Receive Date: 20201019
  Receipt Date: 20201023
  Transmission Date: 20210114
  Serious: Yes (Other)
  Sender: FDA-Public Use
  Company Number: US-ROCHE-2698505

PATIENT
  Sex: Female

DRUGS (2)
  1. XOLAIR [Suspect]
     Active Substance: OMALIZUMAB
     Indication: ASTHMA
     Route: 058
     Dates: start: 20161228
  2. XOLAIR [Suspect]
     Active Substance: OMALIZUMAB
     Route: 065
     Dates: start: 20201008

REACTIONS (3)
  - Vision blurred [Recovering/Resolving]
  - Photosensitivity reaction [Recovering/Resolving]
  - Eye pain [Recovering/Resolving]
